FAERS Safety Report 24285767 (Version 1)
Quarter: 2024Q3

REPORT INFORMATION
  Report Type: Spontaneous
  Country: US (occurrence: None)
  Receive Date: 20240904
  Receipt Date: 20240904
  Transmission Date: 20241017
  Serious: No
  Sender: Public
  Company Number: None

PATIENT
  Age: 76 Year
  Sex: Female
  Weight: 58.5 kg

DRUGS (1)
  1. LEQEMBI [Suspect]
     Active Substance: LECANEMAB-IRMB
     Indication: Dementia Alzheimer^s type
     Dosage: FREQUENCY : EVERY OTHER WEEK;?
     Route: 042

REACTIONS (3)
  - Magnetic resonance imaging abnormal [None]
  - Therapy interrupted [None]
  - Fall [None]
